FAERS Safety Report 14406496 (Version 4)
Quarter: 2018Q4

REPORT INFORMATION
  Report Type: Report from Study
  Country: CA (occurrence: CA)
  Receive Date: 20180118
  Receipt Date: 20181012
  Transmission Date: 20190204
  Serious: Yes (Hospitalization, Disabling)
  Sender: FDA-Public Use
  Company Number: CA-JNJFOC-20170116533

PATIENT
  Age: 66 Year
  Sex: Female

DRUGS (3)
  1. STELARA [Suspect]
     Active Substance: USTEKINUMAB
     Indication: PSORIASIS
     Route: 058
     Dates: start: 20151223
  2. TRAMADOL. [Concomitant]
     Active Substance: TRAMADOL
     Indication: PAIN
     Route: 065
  3. STELARA [Suspect]
     Active Substance: USTEKINUMAB
     Indication: PSORIASIS
     Route: 058
     Dates: start: 20160620

REACTIONS (9)
  - Knee arthroplasty [Unknown]
  - Arthritis [Not Recovered/Not Resolved]
  - Osteoporosis [Unknown]
  - Depression [Unknown]
  - Tooth disorder [Unknown]
  - Hip arthroplasty [Unknown]
  - Sciatica [Unknown]
  - Arthralgia [Unknown]
  - Protein total decreased [Unknown]

NARRATIVE: CASE EVENT DATE: 201711
